FAERS Safety Report 24355067 (Version 2)
Quarter: 2024Q4

REPORT INFORMATION
  Report Type: Spontaneous
  Country: RO (occurrence: RO)
  Receive Date: 20240923
  Receipt Date: 20241008
  Transmission Date: 20250115
  Serious: Yes (Death, Other)
  Sender: TAKEDA
  Company Number: RO-TAKEDA-2024TUS093980

PATIENT
  Sex: Female

DRUGS (1)
  1. HYQVIA [Suspect]
     Active Substance: HUMAN IMMUNOGLOBULIN G\HYALURONIDASE (HUMAN RECOMBINANT)
     Indication: Product used for unknown indication
     Dosage: 20 GRAM, MONTHLY
     Route: 065

REACTIONS (1)
  - Cerebral haemorrhage [Fatal]
